FAERS Safety Report 24377439 (Version 2)
Quarter: 2024Q4

REPORT INFORMATION
  Report Type: Spontaneous
  Country: FR (occurrence: FR)
  Receive Date: 20240930
  Receipt Date: 20241016
  Transmission Date: 20250114
  Serious: Yes (Other)
  Sender: GRIFOLS
  Company Number: None

PATIENT
  Age: 61 Year
  Sex: Male
  Weight: 72 kg

DRUGS (1)
  1. XEMBIFY [Suspect]
     Active Substance: HUMAN IMMUNOGLOBULIN G
     Indication: Peripheral sensory neuropathy
     Dosage: 16 GRAMS PER DAY FOR 3 CONSECUTIVE DAYS OVER 1 WEEK, RENEWED EVERY WEEK
     Route: 058
     Dates: start: 20240506

REACTIONS (3)
  - Injection site erythema [Recovered/Resolved with Sequelae]
  - Injection site necrosis [Recovered/Resolved with Sequelae]
  - Injection site warmth [Recovered/Resolved with Sequelae]

NARRATIVE: CASE EVENT DATE: 20240701
